FAERS Safety Report 18972420 (Version 1)
Quarter: 2021Q1

REPORT INFORMATION
  Report Type: Spontaneous
  Country: US (occurrence: US)
  Receive Date: 20210305
  Receipt Date: 20210305
  Transmission Date: 20210420
  Serious: No
  Sender: FDA-Public Use
  Company Number: US-DRREDDYS-USA/USA/21/0132385

PATIENT
  Age: 56 Year
  Sex: Female
  Weight: 85.5 kg

DRUGS (1)
  1. ESOMEPRAZOLE MAGNESIUM D/R [Suspect]
     Active Substance: ESOMEPRAZOLE MAGNESIUM
     Indication: DYSPEPSIA
     Dosage: 2 TABLETS THURSDAY NIGHT
     Route: 048
     Dates: start: 20210218, end: 20210218

REACTIONS (4)
  - Somnolence [Unknown]
  - Wrong product administered [Unknown]
  - Product packaging quantity issue [Unknown]
  - Product packaging issue [Unknown]

NARRATIVE: CASE EVENT DATE: 20210218
